FAERS Safety Report 6250277-5 (Version None)
Quarter: 2009Q2

REPORT INFORMATION
  Report Type: 
  Country: None (occurrence: None)
  Receive Date: 20090630
  Receipt Date: 20090617
  Transmission Date: 20091009
  Serious: Yes (Other)
  Sender: FDA-Public Use
  Company Number: IN-RANBAXY-2009RR-24877

PATIENT
  Age: 30 Year
  Sex: Female

DRUGS (1)
  1. CETIRIZINE [Suspect]
     Indication: URTICARIA CHRONIC
     Dosage: 10 MG, QD
     Route: 048

REACTIONS (1)
  - ANAPHYLACTIC REACTION [None]
